FAERS Safety Report 7654009-5 (Version None)
Quarter: 2011Q3

REPORT INFORMATION
  Report Type: 
  Country: None (occurrence: None)
  Receive Date: 20110802
  Receipt Date: 20110802
  Transmission Date: 20111222
  Serious: Yes (Other)
  Sender: FDA-Public Use
  Company Number: None

PATIENT
  Age: 51 Year
  Sex: Female
  Weight: 108 kg

DRUGS (1)
  1. REMICADE [Suspect]
     Indication: RHEUMATOID ARTHRITIS
     Dosage: 500 MG ONCE IV
     Route: 042
     Dates: start: 20110728, end: 20110728

REACTIONS (4)
  - HYPERSENSITIVITY [None]
  - INFUSION RELATED REACTION [None]
  - ERYTHEMA [None]
  - PRURITUS [None]
